FAERS Safety Report 6216687-7 (Version None)
Quarter: 2009Q2

REPORT INFORMATION
  Report Type: 
  Country: None (occurrence: None)
  Receive Date: 20090605
  Receipt Date: 20090527
  Transmission Date: 20091009
  Serious: Yes (Hospitalization)
  Sender: FDA-Public Use
  Company Number: JP-JNJFOC-20080602049

PATIENT
  Sex: Male
  Weight: 59 kg

DRUGS (9)
  1. REMICADE [Suspect]
     Indication: CROHN'S DISEASE
     Dosage: RECEIVED 4 INFUSION TOTAL (3 DATES UNSPECIFIED)
     Route: 042
  2. DECADRON [Suspect]
     Indication: PREMEDICATION
  3. LOPEMIN [Concomitant]
     Indication: DIARRHOEA
     Route: 048
  4. OPIUM [Concomitant]
     Indication: DIARRHOEA
     Route: 048
  5. ALLOID G [Concomitant]
     Indication: DYSPEPSIA
     Route: 048
  6. ELENTAL [Concomitant]
     Indication: CROHN'S DISEASE
     Route: 048
  7. MIYA BM [Concomitant]
     Indication: DIARRHOEA
     Dosage: DOSE: 6 TABLETS
     Route: 048
  8. DIPHENHYDRAMINE HCL [Concomitant]
     Indication: PREMEDICATION
     Route: 048
  9. TAKEPRON [Concomitant]
     Indication: DYSPEPSIA

REACTIONS (3)
  - CROHN'S DISEASE [None]
  - PNEUMONIA BACTERIAL [None]
  - TUBERCULOSIS [None]
